FAERS Safety Report 12696831 (Version 1)
Quarter: 2016Q3

REPORT INFORMATION
  Report Type: Spontaneous
  Country: US (occurrence: US)
  Receive Date: 20160830
  Receipt Date: 20160830
  Transmission Date: 20161109
  Serious: No
  Sender: FDA-Public Use
  Company Number: US-BAYER-2016-168184

PATIENT
  Age: 86 Year
  Sex: Female
  Weight: 63.39 kg

DRUGS (14)
  1. FLECAINIDE [Concomitant]
     Active Substance: FLECAINIDE
  2. FOLIC ACID. [Concomitant]
     Active Substance: FOLIC ACID
  3. SPIRONOLACTONE. [Concomitant]
     Active Substance: SPIRONOLACTONE
  4. CLARITIN REDITABS [Suspect]
     Active Substance: LORATADINE
     Indication: SEASONAL ALLERGY
     Dosage: 1 DF, QD
     Route: 048
     Dates: start: 20160822, end: 20160825
  5. ATENOLOL. [Concomitant]
     Active Substance: ATENOLOL
  6. WARFARIN [Concomitant]
     Active Substance: WARFARIN
  7. ONE A DAY ESSENTIAL [Concomitant]
     Active Substance: VITAMINS
  8. SELENIUM [Concomitant]
     Active Substance: SELENIUM
  9. VITAMIN D [Concomitant]
     Active Substance: CHOLECALCIFEROL
  10. OMEGA 3 [FISH OIL] [Concomitant]
  11. LEVOTHYROXINE. [Concomitant]
     Active Substance: LEVOTHYROXINE
  12. VITAMIN E [Concomitant]
     Active Substance: .ALPHA.-TOCOPHEROL
  13. METHOTREXATE. [Concomitant]
     Active Substance: METHOTREXATE
  14. ZOLPIDEM [Concomitant]
     Active Substance: ZOLPIDEM\ZOLPIDEM TARTRATE

REACTIONS (1)
  - Rhinorrhoea [Not Recovered/Not Resolved]

NARRATIVE: CASE EVENT DATE: 20160822
